FAERS Safety Report 20743748 (Version 1)
Quarter: 2022Q2

REPORT INFORMATION
  Report Type: Spontaneous
  Country: US (occurrence: US)
  Receive Date: 20220425
  Receipt Date: 20220425
  Transmission Date: 20220721
  Serious: No
  Sender: FDA-Public Use
  Company Number: US-TEVA-2022-US-2024246

PATIENT
  Sex: Male

DRUGS (4)
  1. PROAIR RESPICLICK [Suspect]
     Active Substance: ALBUTEROL SULFATE
     Route: 055
  2. PROAIR RESPICLICK [Suspect]
     Active Substance: ALBUTEROL SULFATE
  3. PROAIR RESPICLICK [Suspect]
     Active Substance: ALBUTEROL SULFATE
  4. PROAIR RESPICLICK [Suspect]
     Active Substance: ALBUTEROL SULFATE

REACTIONS (2)
  - Device delivery system issue [Unknown]
  - Drug ineffective [Unknown]
